FAERS Safety Report 8304910 (Version 3)
Quarter: 2014Q2

REPORT INFORMATION
  Report Type: Spontaneous
  Country: JP (occurrence: JP)
  Receive Date: 20111221
  Receipt Date: 20140515
  Transmission Date: 20141212
  Serious: Yes (Life-Threatening, Other)
  Sender: FDA-Public Use
  Company Number: PHHY2010JP82178

PATIENT
  Age: 41 Year
  Sex: Female

DRUGS (42)
  1. CLOZARIL [Suspect]
     Indication: SCHIZOPHRENIA
     Dosage: 12.5 MG
     Route: 048
  2. CLOZARIL [Suspect]
     Dosage: 25 MG DAILY
     Route: 048
     Dates: start: 20100729, end: 20100729
  3. CLOZARIL [Suspect]
     Dosage: 50 MG
     Route: 048
     Dates: start: 20100730, end: 20100801
  4. CLOZARIL [Suspect]
     Dosage: 50 MG
     Route: 048
     Dates: start: 20100802, end: 20100804
  5. CLOZARIL [Suspect]
     Dosage: 75 MG
     Route: 048
     Dates: start: 20100805, end: 20100806
  6. CLOZARIL [Suspect]
     Dosage: 100 MG
     Route: 048
     Dates: start: 20100807, end: 20100808
  7. CLOZARIL [Suspect]
     Dosage: 125 MG
     Route: 048
     Dates: start: 20100809, end: 20100811
  8. CLOZARIL [Suspect]
     Dosage: 150 MG
     Route: 048
     Dates: start: 20100812, end: 20100814
  9. CLOZARIL [Suspect]
     Dosage: 175 MG
     Route: 048
     Dates: start: 20100815, end: 20100817
  10. CLOZARIL [Suspect]
     Dosage: 100 MG
     Route: 048
     Dates: start: 20100818, end: 20100820
  11. CLOZARIL [Suspect]
     Dosage: 5 MG
     Route: 048
     Dates: start: 20100910, end: 20100914
  12. PURSENNIDE [Concomitant]
     Indication: SCHIZOPHRENIA
     Dosage: 12 MG, UNK
     Route: 048
     Dates: start: 20100809
  13. TIMIPERONE [Concomitant]
     Dosage: UNK UKN, UNK
     Route: 048
  14. BROMPERIDOL [Concomitant]
     Dosage: 2 MG, UNK
     Route: 048
  15. PERPHENAZINE [Concomitant]
     Dosage: 4 MG, UNK
     Route: 048
  16. RISPERIDONE [Concomitant]
     Dosage: 6 MG, UNK
     Route: 048
  17. PEROSPIRONE HYDROCHLORIDE [Concomitant]
     Dosage: UNK UKN, UNK
     Route: 048
  18. QUETIAPINE FUMARATE [Concomitant]
     Dosage: UNK UKN, UNK
     Route: 048
  19. ARIPIPRAZOLE [Concomitant]
     Dosage: 24 MG, UNK
  20. BLONANSERIN [Concomitant]
     Dosage: UNK UKN, UNK
  21. LEVOMEPROMAZINE MALEATE [Concomitant]
     Dosage: 10 MG, UNK
     Route: 048
     Dates: start: 20100729
  22. LEVOMEPROMAZINE MALEATE [Concomitant]
     Dosage: 5 MG, UNK
     Route: 048
  23. LEVOMEPROMAZINE MALEATE [Concomitant]
     Dosage: 15 MG, UNK
     Route: 048
  24. LEVOMEPROMAZINE MALEATE [Concomitant]
     Dosage: 25 MG, UNK
     Route: 048
  25. LEVOMEPROMAZINE MALEATE [Concomitant]
     Dosage: 10 MG, UNK
     Route: 048
     Dates: end: 20101006
  26. OLANZAPINE [Concomitant]
     Dosage: 10 MG, UNK
     Route: 048
  27. OLANZAPINE [Concomitant]
     Dosage: 15 MG, UNK
     Route: 048
  28. OLANZAPINE [Concomitant]
     Dosage: 20 MG, UNK
     Route: 048
  29. LEXOTAN [Concomitant]
     Indication: SCHIZOPHRENIA
     Dosage: 6 MG, UNK
     Route: 048
  30. AKINETON [Concomitant]
     Indication: SCHIZOPHRENIA
     Dosage: 3 MG, UNK
     Route: 048
  31. AKINETON [Concomitant]
     Dosage: 2 MG, UNK
     Route: 048
  32. AKINETON [Concomitant]
     Dosage: 4 MG, UNK
     Route: 048
  33. MEILAX [Concomitant]
     Indication: SCHIZOPHRENIA
     Dosage: 4 MG, UNK
     Route: 048
     Dates: start: 20100814
  34. MEILAX [Concomitant]
     Dosage: 2 MG, UNK
     Route: 048
  35. ALMARL [Concomitant]
     Indication: SCHIZOPHRENIA
     Dosage: 20 MG, UNK
     Route: 048
  36. SILECE [Concomitant]
     Indication: SCHIZOPHRENIA
     Dosage: 2 MG, UNK
     Route: 048
  37. SILECE [Concomitant]
     Dosage: 3 MG, UNK
     Route: 048
  38. SILECE [Concomitant]
     Dosage: 4 MG, UNK
     Route: 048
  39. MAGMITT [Concomitant]
     Indication: SCHIZOPHRENIA
     Dosage: 990 MG, UNK
     Route: 048
     Dates: start: 20100806
  40. MAGMITT [Concomitant]
     Dosage: 1500 MG, UNK
     Route: 048
  41. DEPAKENE-R [Concomitant]
     Indication: SCHIZOPHRENIA
     Dosage: 400 MG, UNK
     Route: 048
     Dates: start: 20100917
  42. DEPAKENE-R [Concomitant]
     Dosage: 800 MG, UNK
     Route: 048

REACTIONS (14)
  - Pleurisy [Recovered/Resolved]
  - Pleural effusion [Recovered/Resolved]
  - Pyrexia [Recovered/Resolved]
  - Atelectasis [Unknown]
  - C-reactive protein increased [Unknown]
  - White blood cell count decreased [Recovered/Resolved]
  - Neutrophil count decreased [Recovered/Resolved]
  - Hepatic function abnormal [Recovered/Resolved]
  - Platelet count decreased [Unknown]
  - Aggression [Unknown]
  - Anger [Unknown]
  - Thirst [Unknown]
  - Agitation [Unknown]
  - Irritability [Unknown]
